FAERS Safety Report 8190653-7 (Version None)
Quarter: 2012Q1

REPORT INFORMATION
  Report Type: 
  Country: None (occurrence: None)
  Receive Date: 20120307
  Receipt Date: 20120215
  Transmission Date: 20120608
  Serious: Yes (Other)
  Sender: FDA-Public Use
  Company Number: MX-ROCHE-1003361

PATIENT
  Sex: Female
  Weight: 87.5 kg

DRUGS (1)
  1. HERCEPTIN [Suspect]
     Indication: BREAST CANCER
     Route: 042
     Dates: start: 20100923

REACTIONS (7)
  - MENORRHAGIA [None]
  - METASTASES TO LIVER [None]
  - THYROID FUNCTION TEST ABNORMAL [None]
  - DRUG INEFFECTIVE [None]
  - TACHYCARDIA [None]
  - DRY SKIN [None]
  - HEPATIC PAIN [None]
